FAERS Safety Report 6254299-X (Version None)
Quarter: 2009Q3

REPORT INFORMATION
  Report Type: 
  Country: None (occurrence: None)
  Receive Date: 20090702
  Receipt Date: 20090626
  Transmission Date: 20100115
  Serious: Yes (Hospitalization)
  Sender: FDA-Public Use
  Company Number: US-BIOGENIDEC-2006BI018180

PATIENT
  Age: 43 Year
  Sex: Male

DRUGS (2)
  1. AVONEX [Suspect]
     Indication: MULTIPLE SCLEROSIS
     Route: 030
     Dates: start: 19980301
  2. BETASERON [Concomitant]
     Indication: MULTIPLE SCLEROSIS
     Route: 058
     Dates: start: 20001201, end: 20001201

REACTIONS (7)
  - BIOPSY BONE [None]
  - DECUBITUS ULCER [None]
  - DYSSTASIA [None]
  - MULTIPLE SCLEROSIS [None]
  - PYREXIA [None]
  - URINARY TRACT INFECTION [None]
  - WOUND [None]
